FAERS Safety Report 4916455-X (Version None)
Quarter: 2006Q1

REPORT INFORMATION
  Report Type: 
  Country: None (occurrence: None)
  Receive Date: 20060214
  Receipt Date: 20060206
  Transmission Date: 20060701
  Serious: Yes (Life-Threatening)
  Sender: FDA-Public Use
  Company Number: 083-20785-06020157

PATIENT
  Sex: 0

DRUGS (3)
  1. THALIDOMIDE             (THALIDOMIDE) [Suspect]
     Indication: MULTIPLE MYELOMA
     Dosage: 100 MG, QD, ORAL
     Route: 048
  2. PREDNISONE TAB [Suspect]
     Indication: MULTIPLE MYELOMA
     Dosage: 40 MG/M2, QD X 7D/MO, FOR 6 MONTHLY COURSES
  3. MELPHALAN                (MELPHALAN) [Suspect]
     Indication: MULTIPLE MYELOMA
     Dosage: 4 MG/M2, QD X 7D/MO, FOR 6 MONTHLY COURSES

REACTIONS (1)
  - COMA [None]
